FAERS Safety Report 15148222 (Version 1)
Quarter: 2018Q3

REPORT INFORMATION
  Report Type: Spontaneous
  Country: US (occurrence: US)
  Receive Date: 20180716
  Receipt Date: 20180716
  Transmission Date: 20181010
  Serious: No
  Sender: FDA-Public Use
  Company Number: US-009507513-1512USA007416

PATIENT
  Age: 25 Year
  Sex: Female

DRUGS (6)
  1. RALTEGRAVIR POTASSIUM [Suspect]
     Active Substance: RALTEGRAVIR POTASSIUM
     Dosage: TOTAL DAILY DOSE: 800 UNITS NOT PROVIDED
     Route: 048
     Dates: start: 2015, end: 2015
  2. EMTRICITABINE (+) TENOFOVIR DISOPROXIL FUMARATE [Suspect]
     Active Substance: EMTRICITABINE\TENOFOVIR DISOPROXIL
     Dosage: TOTAL DAILY DOSE: 1 (UNITS NOT REPORTED)
     Route: 048
     Dates: start: 2014
  3. ATAZANAVIR. [Suspect]
     Active Substance: ATAZANAVIR SULFATE
     Dosage: TOTAL DAILY DOSE: 300 UNITS NOT REPORTED
     Route: 048
     Dates: start: 2015
  4. ZIDOVUDINE. [Suspect]
     Active Substance: ZIDOVUDINE
     Dosage: TOTAL DAILY DOSE: 265 (UNITS NOT PROVIDED)
     Route: 042
     Dates: start: 2015, end: 2015
  5. RITONAVIR. [Suspect]
     Active Substance: RITONAVIR
     Dosage: TOTAL DAILY DOSE: 100 (UNITS NOT PROVIDED)
     Route: 048
     Dates: start: 2014
  6. ATAZANAVIR. [Suspect]
     Active Substance: ATAZANAVIR SULFATE
     Dosage: TOTAL DAILY DOSE: 400 (UNITS NOT REPORTED)
     Route: 048
     Dates: start: 2014, end: 2015

REACTIONS (1)
  - Maternal exposure during pregnancy [Recovered/Resolved]
